FAERS Safety Report 24609068 (Version 1)
Quarter: 2024Q4

REPORT INFORMATION
  Report Type: Spontaneous
  Country: BR (occurrence: BR)
  Receive Date: 20241112
  Receipt Date: 20241112
  Transmission Date: 20250115
  Serious: Yes (Hospitalization)
  Sender: BOEHRINGER INGELHEIM
  Company Number: BR-Komodo Health-a23aa000004825aAAA

PATIENT
  Age: 91 Year
  Sex: Female

DRUGS (4)
  1. SPIRIVA RESPIMAT [Suspect]
     Active Substance: TIOTROPIUM BROMIDE
     Indication: Asthma
     Dosage: 1 PUFF, ONCE A DAY, IN THE MORNING
  2. SPIRIVA RESPIMAT [Suspect]
     Active Substance: TIOTROPIUM BROMIDE
     Dosage: INCREASED DOSAGE DURING HOSPITALIZATION, NUMBER OF PUFFS NOT SPECIFIED, IN THE MORNING AND AFTERNOON
     Dates: start: 202411
  3. SPIRIVA RESPIMAT [Suspect]
     Active Substance: TIOTROPIUM BROMIDE
     Dosage: 2 CONSECUTIVE PUFFS, ONCE A DAY, IN THE MORNING
     Dates: start: 201605
  4. ALBUTEROL [Concomitant]
     Active Substance: ALBUTEROL
     Indication: Asthma
     Dosage: 2 PUFFS A DAY, ONE AT NIGHT AND ONE IN THE MORNING

REACTIONS (23)
  - Fatigue [Not Recovered/Not Resolved]
  - Eye movement disorder [Recovered/Resolved]
  - Dyspnoea [Recovered/Resolved]
  - Pneumonia [Not Recovered/Not Resolved]
  - Urinary tract infection [Recovered/Resolved]
  - Gastrostomy [Unknown]
  - Bedridden [Unknown]
  - Enteral nutrition [Unknown]
  - Decreased appetite [Unknown]
  - Gastrostomy tube removal [Unknown]
  - Cough [Recovered/Resolved]
  - Urinary tract infection [Recovered/Resolved]
  - Dementia Alzheimer^s type [Unknown]
  - Abdominal discomfort [Unknown]
  - Gastrooesophageal reflux disease [Unknown]
  - Asthenia [Unknown]
  - Malaise [Unknown]
  - Speech disorder [Unknown]
  - Malaise [Unknown]
  - Off label use [Not Recovered/Not Resolved]
  - Infection [Unknown]
  - Fatigue [Unknown]
  - General physical health deterioration [Unknown]

NARRATIVE: CASE EVENT DATE: 20240101
